FAERS Safety Report 8105309-6 (Version None)
Quarter: 2012Q1

REPORT INFORMATION
  Report Type: 
  Country: None (occurrence: None)
  Receive Date: 20120201
  Receipt Date: 20120126
  Transmission Date: 20120608
  Serious: Yes (Other)
  Sender: FDA-Public Use
  Company Number: PHFR2012GB000892

PATIENT
  Sex: Male

DRUGS (1)
  1. TEGRETOL [Suspect]
     Indication: EPILEPSY
     Dosage: 400 MG, UNK
     Route: 048

REACTIONS (3)
  - BLOOD SODIUM DECREASED [None]
  - HYPERTENSION [None]
  - CEREBROVASCULAR ACCIDENT [None]
